FAERS Safety Report 8467892-0 (Version None)
Quarter: 2012Q2

REPORT INFORMATION
  Report Type: 
  Country: None (occurrence: None)
  Receive Date: 20120626
  Receipt Date: 20120615
  Transmission Date: 20120825
  Serious: Yes (Hospitalization, Other)
  Sender: FDA-Public Use
  Company Number: MX-BRISTOL-MYERS SQUIBB COMPANY-16689473

PATIENT
  Age: 73 Year
  Sex: Male
  Weight: 62 kg

DRUGS (4)
  1. AMLODIPINE [Concomitant]
     Indication: HYPERTENSION
     Dosage: 1TAB/24HOURS
     Route: 048
     Dates: start: 20070101
  2. LEVOTHYROXINE [Concomitant]
     Indication: HORMONE REPLACEMENT THERAPY
     Dosage: 1TAB/24HRS
     Route: 048
     Dates: start: 20101101
  3. CLONAZEPAM [Concomitant]
     Indication: INSOMNIA
     Dosage: 1/2TAB/DAY
     Route: 048
     Dates: start: 20070101
  4. IRBESARTAN AND HYDROCHLOROTHIAZIDE [Suspect]
     Indication: HYPERTENSION
     Dosage: 1TAB/24HRS
     Route: 048
     Dates: start: 20070101

REACTIONS (3)
  - SUTURE RELATED COMPLICATION [None]
  - ABSCESS NECK [None]
  - THYROID NEOPLASM [None]
